FAERS Safety Report 8346252 (Version 13)
Quarter: 2013Q1

REPORT INFORMATION
  Report Type: Spontaneous
  Country: US (occurrence: JP)
  Receive Date: 20120120
  Receipt Date: 20130104
  Transmission Date: 20140127
  Serious: Yes (Hospitalization)
  Sender: FDA-Public Use
  Company Number: US-MYLANLABS-2011S1000185

PATIENT
  Age: 11 Year
  Sex: Male

DRUGS (45)
  1. TAKEPRON [Suspect]
     Route: 048
     Dates: start: 20100628, end: 20100728
  2. ULTIVA [Suspect]
     Route: 042
     Dates: start: 20100621, end: 20100708
  3. ANHIBA [Suspect]
     Route: 054
     Dates: start: 20100630, end: 20100716
  4. ETIZOLAM [Suspect]
     Dosage: UNIT CONT:1
     Route: 048
     Dates: start: 20100701, end: 20100701
  5. DIAZEPAM [Suspect]
     Route: 048
     Dates: start: 20100622, end: 20100701
  6. DIAZEPAM [Suspect]
     Route: 048
     Dates: start: 20100702, end: 20100722
  7. MORPHINE HYDROCHLORIDE [Suspect]
     Route: 041
     Dates: start: 20100621, end: 20100709
  8. FAMOTIDINE [Suspect]
     Route: 048
     Dates: start: 20100626, end: 20100715
  9. FAMOTIDINE [Suspect]
     Route: 041
     Dates: start: 20100617, end: 20100626
  10. CEFAZOLIN [Suspect]
     Route: 041
     Dates: start: 20100622, end: 20100624
  11. NITRAZEPAM [Suspect]
     Route: 041
     Dates: start: 20100617, end: 20100709
  12. PHENOBARBITAL [Suspect]
     Route: 048
     Dates: start: 20100622, end: 20100709
  13. AMPICILLIN [Suspect]
     Route: 041
     Dates: start: 20100715, end: 20100716
  14. CEFTRIAXONE [Suspect]
     Indication: INFECTION
     Route: 041
     Dates: start: 20100630, end: 20100707
  15. STREPTOCOCCUS FAECAIS [Suspect]
     Route: 048
     Dates: start: 20100711, end: 20100718
  16. RISPERIDONE [Suspect]
     Route: 048
     Dates: start: 20100702, end: 20100714
  17. PARACETAMOL [Suspect]
     Indication: PYREXIA
     Route: 048
     Dates: start: 20100627, end: 20100716
  18. MIDAZOLAM [Suspect]
     Route: 041
     Dates: start: 20100621, end: 20100621
  19. CLINDAMYCIN PHOSPHATE [Suspect]
     Route: 042
     Dates: start: 20100708, end: 20100710
  20. PIPERACILLIN SODIUM [Suspect]
     Route: 041
     Dates: start: 20100715, end: 20100716
  21. BIOFERMIN [Suspect]
     Route: 048
     Dates: start: 20100711, end: 20100718
  22. FUROSEMIDE [Suspect]
     Route: 048
     Dates: start: 20100626, end: 20100706
  23. SPIRONOLACTONE [Suspect]
     Route: 048
     Dates: start: 20100626, end: 20100706
  24. LACTOBACILLUS CASEI [Suspect]
     Route: 048
     Dates: start: 20100702, end: 20100709
  25. TRICLOFOS SODIUM [Suspect]
     Route: 048
     Dates: start: 20100628, end: 20100705
  26. SODIUM PICOSULFATE [Suspect]
     Route: 048
     Dates: start: 20100620, end: 20100620
  27. OMEPRAZOLE [Suspect]
     Route: 041
     Dates: start: 20100716, end: 20100721
  28. HEPARIN SODIUM [Suspect]
     Route: 041
     Dates: start: 20100617
  29. HEPARIN SODIUM [Suspect]
     Route: 041
     Dates: start: 20100808, end: 20100812
  30. GLYCEOL [Suspect]
     Route: 041
     Dates: start: 20100617, end: 20100618
  31. DEXAMETHASONE [Suspect]
     Route: 042
     Dates: start: 20100617, end: 20100622
  32. ATROPINE SULFATE [Suspect]
     Route: 041
     Dates: start: 20100617, end: 20100622
  33. EPINEPHRINE [Suspect]
     Route: 041
     Dates: start: 20100621, end: 20100621
  34. CALCIUM GLUCONATE [Suspect]
     Route: 041
     Dates: start: 20100621, end: 20100621
  35. FENTANYL [Suspect]
     Route: 041
     Dates: start: 20100621, end: 20100708
  36. NICARDIPINE HYDROCHLORIDE [Suspect]
     Route: 041
     Dates: start: 20100622, end: 20100624
  37. DEXMEDETOMIDINE HYDROCHLORIDE [Suspect]
     Route: 041
     Dates: start: 20100704, end: 20100705
  38. ROCURONIUM BROMIDE [Suspect]
     Route: 041
     Dates: start: 20100617, end: 20100706
  39. LIDOCAINE [Suspect]
     Route: 041
     Dates: start: 20100621, end: 20100709
  40. DEXPANTHENOL [Suspect]
     Route: 041
     Dates: start: 20100604, end: 20100705
  41. HYDROXYZINE HYDROCHLORIDE [Suspect]
     Route: 041
     Dates: start: 20100709, end: 20100709
  42. FLURBIPROFEN AXETIL [Suspect]
     Route: 041
     Dates: start: 20100709, end: 20100709
  43. OFLOXACIN [Suspect]
     Route: 047
     Dates: start: 20100728, end: 20100729
  44. HYALURONATE SODIUM [Suspect]
     Route: 047
     Dates: start: 20100723, end: 20100821
  45. GLYCEOL [Suspect]
     Indication: CONSTIPATION
     Route: 054
     Dates: start: 20100621

REACTIONS (1)
  - Drug reaction with eosinophilia and systemic symptoms [Recovered/Resolved]
